FAERS Safety Report 6809234-X (Version None)
Quarter: 2010Q2

REPORT INFORMATION
  Report Type: 
  Country: None (occurrence: None)
  Receive Date: 20100630
  Receipt Date: 20100113
  Transmission Date: 20101027
  Serious: Yes (Death)
  Sender: FDA-Public Use
  Company Number: US-ASTRAZENECA-2007UW08205

PATIENT
  Sex: Female

DRUGS (3)
  1. SEROQUEL [Suspect]
     Dosage: 150 TO 200 MG
     Route: 048
     Dates: start: 20020501
  2. RISPERDAL [Concomitant]
     Dates: start: 20020501
  3. TOPAMAX [Concomitant]
     Dates: start: 20020501

REACTIONS (6)
  - ARRHYTHMIA [None]
  - CARDIAC ARREST [None]
  - DIABETES MELLITUS [None]
  - MYOCARDIAL FIBROSIS [None]
  - PERICARDIAL EFFUSION [None]
  - RIGHT VENTRICULAR HYPERTROPHY [None]
